FAERS Safety Report 4641767-7 (Version None)
Quarter: 2005Q2

REPORT INFORMATION
  Report Type: 
  Country: None (occurrence: None)
  Receive Date: 20050421
  Receipt Date: 20050411
  Transmission Date: 20051028
  Serious: Yes (Life-Threatening, Hospitalization, Disabling, Other)
  Sender: FDA-Public Use
  Company Number: JP-MERCK-0504USA02456

PATIENT
  Age: 23 Year
  Sex: Female

DRUGS (5)
  1. CLINORIL [Suspect]
     Indication: SLE ARTHRITIS
     Route: 048
     Dates: start: 20050119, end: 20050205
  2. CYTOTEC [Suspect]
     Indication: SLE ARTHRITIS
     Route: 048
     Dates: start: 20050119, end: 20050205
  3. ACETAMINOPHEN [Concomitant]
     Route: 048
     Dates: start: 20050202, end: 20050205
  4. ACETAMINOPHEN [Concomitant]
     Route: 065
     Dates: start: 20050203, end: 20050205
  5. [THERAPY UNSPECIFIED] [Suspect]
     Indication: NASOPHARYNGITIS
     Route: 048
     Dates: start: 20050202, end: 20050205

REACTIONS (12)
  - ALANINE AMINOTRANSFERASE INCREASED [None]
  - ASPARTATE AMINOTRANSFERASE INCREASED [None]
  - BLOOD ALKALINE PHOSPHATASE INCREASED [None]
  - BLOOD LACTATE DEHYDROGENASE INCREASED [None]
  - BLOOD POTASSIUM INCREASED [None]
  - BLOOD SODIUM DECREASED [None]
  - BLOOD UREA INCREASED [None]
  - JAUNDICE [None]
  - LIVER DISORDER [None]
  - MELAENA [None]
  - RENAL DISORDER [None]
  - TOXIC EPIDERMAL NECROLYSIS [None]
